FAERS Safety Report 20178732 (Version 1)
Quarter: 2021Q4

REPORT INFORMATION
  Report Type: Spontaneous
  Country: FR (occurrence: FR)
  Receive Date: 20211214
  Receipt Date: 20211214
  Transmission Date: 20220303
  Serious: Yes (Hospitalization, Other)
  Sender: FDA-Public Use
  Company Number: None

PATIENT
  Age: 62 Year
  Sex: Male
  Weight: 81 kg

DRUGS (2)
  1. YERVOY [Suspect]
     Active Substance: IPILIMUMAB
     Indication: Metastatic malignant melanoma
     Dosage: 100 MILLIGRAM
     Route: 042
     Dates: start: 20201015, end: 20210106
  2. OPDIVO [Suspect]
     Active Substance: NIVOLUMAB
     Indication: Metastatic malignant melanoma
     Dosage: 480 MILLIGRAM
     Route: 042
     Dates: start: 20201015, end: 20211109

REACTIONS (1)
  - Diabetic metabolic decompensation [Not Recovered/Not Resolved]

NARRATIVE: CASE EVENT DATE: 20201101
